FAERS Safety Report 6276358-8 (Version None)
Quarter: 2009Q3

REPORT INFORMATION
  Report Type: 
  Country: None (occurrence: None)
  Receive Date: 20090722
  Receipt Date: 20090716
  Transmission Date: 20100115
  Serious: Yes (Other)
  Sender: FDA-Public Use
  Company Number: PHHY2009JP27997

PATIENT
  Age: 10 Year
  Sex: Female

DRUGS (1)
  1. TEGRETOL [Suspect]
     Dosage: UNK
     Route: 048
     Dates: start: 20090706

REACTIONS (2)
  - CONCOMITANT DISEASE AGGRAVATED [None]
  - MUSCLE TIGHTNESS [None]
